FAERS Safety Report 10267970 (Version 1)
Quarter: 2014Q2

REPORT INFORMATION
  Report Type: Spontaneous
  Country: US (occurrence: None)
  Receive Date: 20140626
  Receipt Date: 20140626
  Transmission Date: 20141212
  Serious: Yes (Life-Threatening)
  Sender: FDA-Public Use
  Company Number: None

PATIENT
  Age: 35 Year
  Sex: Female

DRUGS (2)
  1. NAROPIN [Suspect]
     Indication: EPIDURAL ANALGESIA
     Dates: start: 20131002, end: 20131002
  2. OFIRMEV 1000 MG CADENCE [Suspect]
     Indication: POSTOPERATIVE ANALGESIA
     Dates: start: 20131002, end: 20131002

REACTIONS (6)
  - Dizziness [None]
  - Dyspnoea [None]
  - Visual impairment [None]
  - Anxiety [None]
  - Wrong drug administered [None]
  - Product container issue [None]
